FAERS Safety Report 6941189-X (Version None)
Quarter: 2010Q3

REPORT INFORMATION
  Report Type: 
  Country: None (occurrence: None)
  Receive Date: 20100825
  Receipt Date: 20100617
  Transmission Date: 20110219
  Serious: No
  Sender: FDA-Public Use
  Company Number: US-BRISTOL-MYERS SQUIBB COMPANY-15154099

PATIENT
  Age: 53 Year
  Sex: Female

DRUGS (12)
  1. ONGLYZA [Suspect]
     Dosage: 1DF=1DOSE
  2. LANTUS [Concomitant]
  3. POTASSIUM [Concomitant]
  4. CYMBALTA [Concomitant]
  5. DIOVAN [Concomitant]
  6. ZOLOFT [Concomitant]
  7. NEXIUM [Concomitant]
  8. HYDRALAZINE [Concomitant]
  9. AMLODIPINE [Concomitant]
  10. ALBUTEROL SULATE [Concomitant]
     Route: 055
  11. TWINRIX [Concomitant]
  12. ETHACRYNIC ACID [Concomitant]

REACTIONS (2)
  - RASH [None]
  - SWELLING [None]
